FAERS Safety Report 8341841-8 (Version None)
Quarter: 2012Q2

REPORT INFORMATION
  Report Type: 
  Country: None (occurrence: None)
  Receive Date: 20120507
  Receipt Date: 20120426
  Transmission Date: 20120825
  Serious: Yes (Hospitalization)
  Sender: FDA-Public Use
  Company Number: US-ACTELION-A-US2012-64994

PATIENT

DRUGS (2)
  1. TRACLEER [Suspect]
     Indication: PULMONARY ARTERIAL HYPERTENSION
     Dosage: UNK
     Route: 048
     Dates: start: 20110505
  2. VENTAVIS [Suspect]
     Indication: PULMONARY ARTERIAL HYPERTENSION
     Dosage: UNK
     Route: 055
     Dates: start: 20120412, end: 20120401

REACTIONS (11)
  - MUSCLE SPASMS [None]
  - NAUSEA [None]
  - CONVULSION [None]
  - SYNCOPE [None]
  - ORAL DISCOMFORT [None]
  - MENINGIOMA [None]
  - MYALGIA [None]
  - DYSPNOEA [None]
  - DECREASED APPETITE [None]
  - DYSPHONIA [None]
  - HEADACHE [None]
